FAERS Safety Report 20752595 (Version 1)
Quarter: 2022Q2

REPORT INFORMATION
  Report Type: Spontaneous
  Country: US (occurrence: None)
  Receive Date: 20220426
  Receipt Date: 20220426
  Transmission Date: 20220721
  Serious: No
  Sender: FDA-Public Use
  Company Number: US-ROCHE-2838686

PATIENT
  Sex: Male

DRUGS (17)
  1. ESBRIET [Suspect]
     Active Substance: PIRFENIDONE
     Indication: Idiopathic pulmonary fibrosis
     Route: 048
     Dates: start: 20210511
  2. AMLODIPINE BESYLATE [Concomitant]
     Active Substance: AMLODIPINE BESYLATE
  3. CLONAZEPAM [Concomitant]
     Active Substance: CLONAZEPAM
  4. FLUTICASONE [Concomitant]
     Active Substance: FLUTICASONE
  5. GABAPENTIN [Concomitant]
     Active Substance: GABAPENTIN
  6. ISOSORBIDE MONONITRATE [Concomitant]
     Active Substance: ISOSORBIDE MONONITRATE
  7. LISINOPRIL [Concomitant]
     Active Substance: LISINOPRIL
  8. OMEPRAZOLE [Concomitant]
     Active Substance: OMEPRAZOLE
  9. PAROXETINE HYDROCHLORIDE [Concomitant]
     Active Substance: PAROXETINE HYDROCHLORIDE
  10. PREDNISONE [Concomitant]
     Active Substance: PREDNISONE
  11. PROAIR HFA [Concomitant]
     Active Substance: ALBUTEROL SULFATE
  12. ROPINIROLE HYDROCHLORIDE [Concomitant]
     Active Substance: ROPINIROLE HYDROCHLORIDE
  13. SIMVASTATIN [Concomitant]
     Active Substance: SIMVASTATIN
  14. TESTOSTERONE [Concomitant]
     Active Substance: TESTOSTERONE
     Dosage: 200 MG/ML
  15. TRAMADOL HYDROCHLORIDE [Concomitant]
     Active Substance: TRAMADOL HYDROCHLORIDE
  16. TRELEGY ELLIPTA [Concomitant]
     Active Substance: FLUTICASONE FUROATE\UMECLIDINIUM BROMIDE\VILANTEROL TRIFENATATE
  17. ZOLPIDEM TARTRATE [Concomitant]
     Active Substance: ZOLPIDEM TARTRATE

REACTIONS (1)
  - Candida infection [Not Recovered/Not Resolved]
